FAERS Safety Report 5739932-0 (Version None)
Quarter: 2008Q2

REPORT INFORMATION
  Report Type: 
  Country: None (occurrence: None)
  Receive Date: 20080516
  Receipt Date: 20080506
  Transmission Date: 20081010
  Serious: Yes (Other)
  Sender: FDA-Public Use
  Company Number: US-BAYER-200822122NA

PATIENT
  Sex: Female

DRUGS (2)
  1. YAS [Suspect]
     Indication: DRUG USE FOR UNKNOWN INDICATION
     Route: 048
  2. TEA, GREEN [Interacting]

REACTIONS (1)
  - PULMONARY EMBOLISM [None]
